FAERS Safety Report 6080227-6 (Version None)
Quarter: 2009Q1

REPORT INFORMATION
  Report Type: 
  Country: None (occurrence: None)
  Receive Date: 20090217
  Receipt Date: 20090211
  Transmission Date: 20090719
  Serious: Yes (Other)
  Sender: FDA-Public Use
  Company Number: US-ELI_LILLY_AND_COMPANY-US200902003184

PATIENT
  Age: 12 Year
  Sex: Female

DRUGS (6)
  1. HUMALOG [Suspect]
  2. CONCERTA [Concomitant]
     Dosage: 27 MG, DAILY (1/D)
  3. ZOLOFT [Concomitant]
     Dosage: 50 MG, EACH EVENING
  4. GEODON [Concomitant]
     Dosage: 60 MG, EACH EVENING
  5. METFORMIN HCL [Concomitant]
  6. LANTUS [Concomitant]

REACTIONS (3)
  - RASH [None]
  - SYNCOPE [None]
  - URTICARIA [None]
